FAERS Safety Report 5326495-7 (Version None)
Quarter: 2007Q2

REPORT INFORMATION
  Report Type: 
  Country: None (occurrence: None)
  Receive Date: 20070510
  Receipt Date: 20070426
  Transmission Date: 20071010
  Serious: Yes (Death, Hospitalization)
  Sender: FDA-Public Use
  Company Number: CERZ-11632

PATIENT
  Age: 83 Year
  Sex: Female
  Weight: 54 kg

DRUGS (7)
  1. CEREZYME [Suspect]
     Indication: GAUCHER'S DISEASE
     Dosage: 3400 UNITS Q2WKS IV
     Route: 042
     Dates: start: 20011024, end: 20070412
  2. CEREZYME [Suspect]
  3. DEMADEX [Concomitant]
  4. DIGOXIN [Concomitant]
  5. COREG [Concomitant]
  6. COUMADIN [Concomitant]
  7. LEVOXYL [Concomitant]

REACTIONS (7)
  - ANKLE FRACTURE [None]
  - CARDIAC FAILURE [None]
  - FALL [None]
  - PNEUMONIA [None]
  - RENAL FAILURE [None]
  - RESPIRATORY FAILURE [None]
  - STREPTOCOCCAL INFECTION [None]
